FAERS Safety Report 23576804 (Version 5)
Quarter: 2025Q2

REPORT INFORMATION
  Report Type: Report from Study
  Country: US (occurrence: US)
  Receive Date: 20240228
  Receipt Date: 20250403
  Transmission Date: 20250717
  Serious: Yes (Hospitalization, Other)
  Sender: TAKEDA
  Company Number: US-TAKEDA-2024TUS014709

PATIENT
  Sex: Male

DRUGS (1)
  1. MARIBAVIR [Suspect]
     Active Substance: MARIBAVIR
     Indication: Cytomegalovirus infection
     Dosage: 400 MILLIGRAM, BID
     Dates: start: 20240103

REACTIONS (6)
  - Pneumonia [Unknown]
  - Cytomegalovirus infection reactivation [Unknown]
  - Product use issue [Unknown]
  - Product dose omission issue [Unknown]
  - Visual impairment [Unknown]
  - Inappropriate schedule of product administration [Unknown]
